FAERS Safety Report 20389893 (Version 13)
Quarter: 2022Q4

REPORT INFORMATION
  Report Type: Spontaneous
  Country: DE (occurrence: DE)
  Receive Date: 20220128
  Receipt Date: 20221006
  Transmission Date: 20230113
  Serious: Yes (Hospitalization, Other)
  Sender: FDA-Public Use
  Company Number: None

PATIENT
  Age: 74 Year
  Sex: Male

DRUGS (57)
  1. TACROLIMUS [Suspect]
     Active Substance: TACROLIMUS
     Indication: Product used for unknown indication
     Route: 065
  2. COTRIMOXAZOLE [Suspect]
     Active Substance: SULFAMETHOXAZOLE\TRIMETHOPRIM
     Indication: Product used for unknown indication
  3. PROGRAF [Suspect]
     Active Substance: TACROLIMUS
     Indication: Transplant
  4. CHOLECALCIFEROL [Suspect]
     Active Substance: CHOLECALCIFEROL
     Indication: Product used for unknown indication
     Route: 065
  5. CANDESARTAN CILEXETIL [Suspect]
     Active Substance: CANDESARTAN CILEXETIL
     Indication: Product used for unknown indication
     Route: 065
  6. CALCIUM CARBONATE\CHOLECALCIFEROL [Suspect]
     Active Substance: CALCIUM CARBONATE\CHOLECALCIFEROL
     Indication: Product used for unknown indication
  7. DOXAZOSIN [Suspect]
     Active Substance: DOXAZOSIN MESYLATE
     Indication: Hypertension
     Dosage: 8 MG
     Route: 065
  8. SODIUM BICARBONATE [Suspect]
     Active Substance: SODIUM BICARBONATE
     Indication: Product used for unknown indication
     Route: 065
  9. MARCUMAR [Suspect]
     Active Substance: PHENPROCOUMON
     Indication: Cardiac disorder
     Route: 048
  10. CHOLECALCIFEROL [Suspect]
     Active Substance: CHOLECALCIFEROL
     Indication: Product used for unknown indication
     Route: 065
  11. MINOXIDIL [Suspect]
     Active Substance: MINOXIDIL
     Indication: Blood pressure management
     Dosage: 2.5
  12. NITRENDIPINE [Suspect]
     Active Substance: NITRENDIPINE
     Indication: Blood pressure measurement
     Dosage: 2 DOSAGE FORM
     Route: 065
  13. CARVEDILOL [Suspect]
     Active Substance: CARVEDILOL
     Indication: Blood pressure measurement
     Route: 065
  14. HYGROTON [Suspect]
     Active Substance: CHLORTHALIDONE
     Indication: Blood pressure measurement
  15. PANTOPRAZOLE [Suspect]
     Active Substance: PANTOPRAZOLE
     Indication: Abdominal discomfort
     Route: 065
  16. DIGITOXIN [Suspect]
     Active Substance: DIGITOXIN
     Indication: Product used for unknown indication
     Route: 065
  17. FLUVASTATIN SODIUM [Suspect]
     Active Substance: FLUVASTATIN SODIUM
     Indication: Blood cholesterol abnormal
     Route: 065
  18. MYFORTIC [Suspect]
     Active Substance: MYCOPHENOLATE SODIUM
     Indication: Transplant
  19. VALGANCICLOVIR HYDROCHLORIDE [Suspect]
     Active Substance: VALGANCICLOVIR HYDROCHLORIDE
     Indication: Product used for unknown indication
  20. AMPHOTERICIN B [Suspect]
     Active Substance: AMPHOTERICIN B
     Indication: Product used for unknown indication
     Route: 065
  21. SODIUM BICARBONATE [Suspect]
     Active Substance: SODIUM BICARBONATE
     Indication: Product used for unknown indication
     Route: 065
  22. FUROSEMIDE [Suspect]
     Active Substance: FUROSEMIDE
     Indication: Fluid retention
  23. ARANESP [Suspect]
     Active Substance: DARBEPOETIN ALFA
     Indication: Product used for unknown indication
     Route: 065
  24. FERROUS GLYCINE SULFATE [Suspect]
     Active Substance: FERROUS GLYCINE SULFATE
     Indication: Product used for unknown indication
     Route: 065
  25. CANDESARTAN CILEXETIL [Suspect]
     Active Substance: CANDESARTAN CILEXETIL
     Indication: Blood pressure abnormal
     Route: 065
  26. TAMSULOSIN HYDROCHLORIDE [Suspect]
     Active Substance: TAMSULOSIN HYDROCHLORIDE
     Indication: Prostate infection
     Route: 065
  27. TORSEMIDE [Suspect]
     Active Substance: TORSEMIDE
     Indication: Product used for unknown indication
     Route: 065
  28. TACROLIMUS [Suspect]
     Active Substance: TACROLIMUS
     Indication: Transplant
     Route: 065
  29. TACROLIMUS [Suspect]
     Active Substance: TACROLIMUS
     Indication: Product used for unknown indication
     Route: 065
  30. TACROLIMUS [Suspect]
     Active Substance: TACROLIMUS
     Indication: Transplant
     Route: 065
  31. PROGRAF [Suspect]
     Active Substance: TACROLIMUS
     Indication: Transplant
  32. PROGRAF [Suspect]
     Active Substance: TACROLIMUS
     Indication: Transplant
  33. PROGRAF [Suspect]
     Active Substance: TACROLIMUS
     Indication: Transplant
  34. PROGRAF [Suspect]
     Active Substance: TACROLIMUS
     Indication: Prostate infection
  35. PROGRAF [Suspect]
     Active Substance: TACROLIMUS
     Indication: Prostate infection
  36. PROGRAF [Suspect]
     Active Substance: TACROLIMUS
     Indication: Prostate infection
  37. PROGRAF [Suspect]
     Active Substance: TACROLIMUS
     Indication: Prostate infection
  38. DOXAZOSIN [Suspect]
     Active Substance: DOXAZOSIN MESYLATE
     Indication: Hypertension
     Dosage: 8 MG (2 AND 1/2)
     Route: 065
  39. DOXAZOSIN [Suspect]
     Active Substance: DOXAZOSIN MESYLATE
     Indication: Hypertension
     Dosage: 8 MG (2 AND 1/2)
     Route: 065
  40. DOXAZOSIN [Suspect]
     Active Substance: DOXAZOSIN MESYLATE
     Indication: Hypertension
     Route: 065
  41. DOXAZOSIN [Suspect]
     Active Substance: DOXAZOSIN MESYLATE
     Indication: Hypertension
     Route: 065
  42. DOXAZOSIN [Suspect]
     Active Substance: DOXAZOSIN MESYLATE
     Indication: Hypertension
     Route: 065
  43. DOXAZOSIN [Suspect]
     Active Substance: DOXAZOSIN MESYLATE
     Indication: Hypertension
     Dosage: SUSTAINED RELEASE
     Route: 065
  44. DOXAZOSIN [Suspect]
     Active Substance: DOXAZOSIN MESYLATE
     Indication: Hypertension
     Route: 065
  45. MARCUMAR [Suspect]
     Active Substance: PHENPROCOUMON
     Indication: Cardiac disorder
     Route: 065
  46. MARCUMAR [Suspect]
     Active Substance: PHENPROCOUMON
     Indication: Anticoagulant therapy
     Route: 048
  47. MARCUMAR [Suspect]
     Active Substance: PHENPROCOUMON
     Indication: Anticoagulant therapy
     Route: 065
  48. NITRENDIPINE [Suspect]
     Active Substance: NITRENDIPINE
     Indication: Blood pressure measurement
     Dosage: 20 MG, 40 MG
     Route: 065
  49. NITRENDIPINE [Suspect]
     Active Substance: NITRENDIPINE
     Indication: Blood pressure measurement
     Route: 065
  50. NITRENDIPINE [Suspect]
     Active Substance: NITRENDIPINE
     Indication: Blood pressure measurement
     Route: 065
  51. NITRENDIPINE [Suspect]
     Active Substance: NITRENDIPINE
     Indication: Blood pressure measurement
     Route: 065
  52. CARVEDILOL [Suspect]
     Active Substance: CARVEDILOL
     Indication: Blood pressure measurement
     Route: 065
  53. CARVEDILOL [Suspect]
     Active Substance: CARVEDILOL
     Indication: Blood pressure measurement
     Route: 065
  54. CARVEDILOL [Suspect]
     Active Substance: CARVEDILOL
     Indication: Blood pressure measurement
     Route: 065
  55. DIGITOXIN [Suspect]
     Active Substance: DIGITOXIN
     Indication: Cardiac disorder
     Route: 065
  56. CANDESARTAN CILEXETIL [Suspect]
     Active Substance: CANDESARTAN CILEXETIL
     Indication: Blood pressure abnormal
     Route: 065
  57. CANDESARTAN CILEXETIL [Suspect]
     Active Substance: CANDESARTAN CILEXETIL
     Indication: Blood pressure abnormal
     Route: 065
     Dates: end: 202102

REACTIONS (86)
  - Intervertebral disc space narrowing [Unknown]
  - Vertigo [Unknown]
  - Restless legs syndrome [Unknown]
  - Hepatic steatosis [Unknown]
  - Swelling [Unknown]
  - Glycosylated haemoglobin increased [Unknown]
  - Basal cell carcinoma [Recovered/Resolved]
  - Headache [Unknown]
  - C-reactive protein increased [Unknown]
  - Aortic dilatation [Unknown]
  - Fear [Unknown]
  - Rectal prolapse [Unknown]
  - Renal cyst haemorrhage [Not Recovered/Not Resolved]
  - Delayed graft function [Unknown]
  - Haemoglobin decreased [Recovered/Resolved]
  - Vascular anastomotic haemorrhage [Unknown]
  - Carotid arteriosclerosis [Unknown]
  - Activated partial thromboplastin time prolonged [Unknown]
  - Presyncope [Unknown]
  - Haemorrhage [Unknown]
  - Benign prostatic hyperplasia [Unknown]
  - Glycosylated haemoglobin increased [Unknown]
  - Thrombosis [Unknown]
  - Restlessness [Unknown]
  - Red blood cell count decreased [Recovered/Resolved]
  - Arteriosclerosis [Unknown]
  - Oedema peripheral [Unknown]
  - Drug ineffective [Unknown]
  - Hepatosplenomegaly [Unknown]
  - Vascular anastomotic haemorrhage [Unknown]
  - Renal cyst haemorrhage [Not Recovered/Not Resolved]
  - Activated partial thromboplastin time prolonged [Unknown]
  - Incorrect dose administered [Unknown]
  - Blood 25-hydroxycholecalciferol decreased [Recovered/Resolved]
  - Mean cell volume increased [Unknown]
  - Anal cyst [Unknown]
  - Hyperparathyroidism secondary [Unknown]
  - Atrial fibrillation [Unknown]
  - Dizziness [Unknown]
  - Atrial fibrillation [Not Recovered/Not Resolved]
  - Squamous cell carcinoma of skin [Recovered/Resolved]
  - Swelling face [Unknown]
  - Mean cell volume increased [Recovered/Resolved]
  - Thrombosis [Unknown]
  - Large intestine polyp [Unknown]
  - Aortic arteriosclerosis [Unknown]
  - Overdose [Unknown]
  - Haemorrhoids [Unknown]
  - Renal artery stenosis [Unknown]
  - Oedema peripheral [Unknown]
  - Hepatic steatosis [Unknown]
  - Incorrect dose administered [Unknown]
  - Chronic kidney disease [Unknown]
  - Metabolic acidosis [Unknown]
  - Blood potassium increased [Unknown]
  - Spinal osteoarthritis [Unknown]
  - Renal cyst [Unknown]
  - Bradycardia [Unknown]
  - Blood pressure fluctuation [Unknown]
  - Gastrooesophageal reflux disease [Unknown]
  - Diverticulum intestinal [Unknown]
  - Vitamin D decreased [Recovered/Resolved]
  - Myalgia [Unknown]
  - Diverticulum intestinal [Unknown]
  - Pulmonary hypertension [Unknown]
  - Myalgia [Unknown]
  - Glycosylated haemoglobin increased [Unknown]
  - Aortic valve incompetence [Unknown]
  - Delayed graft function [Unknown]
  - Spinal stenosis [Unknown]
  - Actinic keratosis [Unknown]
  - Atrioventricular block [Unknown]
  - Insomnia [Unknown]
  - Chronic kidney disease [Unknown]
  - Hypertension [Unknown]
  - COVID-19 [Unknown]
  - Swelling of eyelid [Unknown]
  - Vena cava injury [Unknown]
  - Complications of transplanted kidney [Unknown]
  - Diverticulum intestinal [Unknown]
  - Pancreatic cystadenoma [Unknown]
  - Vascular compression [Unknown]
  - C-reactive protein increased [Unknown]
  - Abdominal wall haemorrhage [Unknown]
  - Activated partial thromboplastin time prolonged [Unknown]
  - Left ventricular hypertrophy [Unknown]

NARRATIVE: CASE EVENT DATE: 20130401
